FAERS Safety Report 8901576 (Version 1)
Quarter: 2012Q4

REPORT INFORMATION
  Report Type: Spontaneous
  Country: US (occurrence: None)
  Receive Date: 20121105
  Receipt Date: 20121105
  Transmission Date: 20130627
  Serious: Yes (Hospitalization)
  Sender: FDA-Public Use
  Company Number: 140929

PATIENT
  Age: 77 Year
  Sex: Female

DRUGS (1)
  1. ADRIAMYCIN [Suspect]
     Indication: CHEMOTHERAPY

REACTIONS (6)
  - Pyrexia [None]
  - Dyspnoea [None]
  - Palpitations [None]
  - Malaise [None]
  - Sepsis [None]
  - Myalgia [None]
